FAERS Safety Report 26211735 (Version 1)
Quarter: 2025Q4

REPORT INFORMATION
  Report Type: Other
  Country: EU (occurrence: EU)
  Receive Date: 20251230
  Receipt Date: 20251230
  Transmission Date: 20260117
  Serious: Yes (Other)
  Sender: ZYDUS PHARM
  Company Number: None

PATIENT

DRUGS (4)
  1. ESCITALOPRAM [Suspect]
     Active Substance: ESCITALOPRAM OXALATE
     Indication: Depression
     Dosage: 10 MILLIGRAM, QD
     Route: 064
     Dates: end: 20250107
  2. DILTIAZEM HYDROCHLORIDE [Suspect]
     Active Substance: DILTIAZEM HYDROCHLORIDE
     Indication: Essential hypertension
     Dosage: 120 MILLIGRAM, QD
     Route: 064
     Dates: end: 20240625
  3. ESIDREX [Suspect]
     Active Substance: HYDROCHLOROTHIAZIDE
     Indication: Essential hypertension
     Dosage: 25 MILLIGRAM, QD
     Route: 064
     Dates: end: 20250625
  4. TRANDATE [Suspect]
     Active Substance: LABETALOL HYDROCHLORIDE
     Indication: Essential hypertension
     Dosage: 200 MILLIGRAM, BID
     Route: 064
     Dates: start: 20240626, end: 20250107

REACTIONS (4)
  - Neonatal behavioural syndrome [Recovered/Resolved]
  - Small for dates baby [Not Recovered/Not Resolved]
  - Term birth [Recovered/Resolved]
  - Foetal exposure during pregnancy [Recovered/Resolved]

NARRATIVE: CASE EVENT DATE: 20250107
